FAERS Safety Report 15963937 (Version 1)
Quarter: 2019Q1

REPORT INFORMATION
  Report Type: Spontaneous
  Country: US (occurrence: US)
  Receive Date: 20190214
  Receipt Date: 20190214
  Transmission Date: 20190417
  Serious: Yes (Other)
  Sender: FDA-Public Use
  Company Number: US-TARO-2019TAR00076

PATIENT
  Sex: Female

DRUGS (1)
  1. BACITRACIN ZINC OINTMENT [Suspect]
     Active Substance: BACITRACIN ZINC

REACTIONS (2)
  - Skin tightness [Not Recovered/Not Resolved]
  - Thyroid operation [Recovered/Resolved]

NARRATIVE: CASE EVENT DATE: 20190115
